FAERS Safety Report 6998702-6 (Version None)
Quarter: 2010Q3

REPORT INFORMATION
  Report Type: 
  Country: None (occurrence: None)
  Receive Date: 20100920
  Receipt Date: 20100209
  Transmission Date: 20110219
  Serious: No
  Sender: FDA-Public Use
  Company Number: US-ASTRAZENECA-2009SE16744

PATIENT
  Age: 23 Year
  Sex: Female
  Weight: 136.1 kg

DRUGS (9)
  1. SEROQUEL [Suspect]
     Indication: DEPRESSION
     Route: 048
     Dates: start: 20010101, end: 20030101
  2. SEROQUEL [Suspect]
     Indication: SCHIZOPHRENIA
     Route: 048
     Dates: start: 20010101, end: 20030101
  3. ZOLOFT [Concomitant]
     Indication: DEPRESSION
  4. LOVASTATIN [Concomitant]
     Indication: BLOOD CHOLESTEROL INCREASED
  5. LOVASTATIN [Concomitant]
     Indication: HYPERLIPIDAEMIA
  6. ABILIFY [Concomitant]
     Dosage: 25 MG (2) AM
     Dates: start: 20040101
  7. GEODON [Concomitant]
     Dates: start: 20030101
  8. RISPERDAL [Concomitant]
     Dates: start: 20030101
  9. ZYPREXA [Concomitant]

REACTIONS (3)
  - CARPAL TUNNEL SYNDROME [None]
  - MASS [None]
  - TYPE 2 DIABETES MELLITUS [None]
